FAERS Safety Report 19791198 (Version 1)
Quarter: 2021Q3

REPORT INFORMATION
  Report Type: Spontaneous
  Country: US (occurrence: US)
  Receive Date: 20210906
  Receipt Date: 20210906
  Transmission Date: 20211014
  Serious: No
  Sender: FDA-Public Use
  Company Number: US-BIOGEN-2021BI01045490

PATIENT
  Age: 42 Year
  Sex: Female

DRUGS (1)
  1. TYSABRI [Suspect]
     Active Substance: NATALIZUMAB
     Indication: MULTIPLE SCLEROSIS
     Route: 065
     Dates: start: 20210830

REACTIONS (4)
  - Arthralgia [Unknown]
  - Anxiety [Unknown]
  - Restlessness [Unknown]
  - Pruritus [Unknown]

NARRATIVE: CASE EVENT DATE: 20210830
